FAERS Safety Report 23967550 (Version 1)
Quarter: 2024Q2

REPORT INFORMATION
  Report Type: Spontaneous
  Country: US (occurrence: US)
  Receive Date: 20240612
  Receipt Date: 20240612
  Transmission Date: 20240715
  Serious: Yes (Hospitalization, Other)
  Sender: FDA-Public Use
  Company Number: US-SA-2024SA173550

PATIENT
  Age: 11 Year
  Sex: Female

DRUGS (4)
  1. ENOXAPARIN SODIUM [Suspect]
     Active Substance: ENOXAPARIN SODIUM
     Indication: Multisystem inflammatory syndrome in children
  2. CORTICOSTEROID NOS [Suspect]
     Active Substance: CORTICOSTEROID NOS
     Indication: Multisystem inflammatory syndrome in children
  3. HUMAN IMMUNOGLOBULIN G [Concomitant]
     Active Substance: HUMAN IMMUNOGLOBULIN G
     Indication: Multisystem inflammatory syndrome in children
     Route: 042
  4. ASPIRIN [Concomitant]
     Active Substance: ASPIRIN
     Indication: Multisystem inflammatory syndrome in children

REACTIONS (1)
  - Abdominal abscess [Unknown]
